FAERS Safety Report 12783359 (Version 1)
Quarter: 2016Q3

REPORT INFORMATION
  Report Type: Spontaneous
  Country: GB (occurrence: GB)
  Receive Date: 20160927
  Receipt Date: 20160927
  Transmission Date: 20161109
  Serious: Yes (Other)
  Sender: FDA-Public Use
  Company Number: GB-AMGEN-GBRSP2016131216

PATIENT
  Age: 73 Year
  Sex: Male

DRUGS (8)
  1. DIAMICRON [Suspect]
     Active Substance: GLICLAZIDE
     Dosage: 15 MG, QD
     Route: 065
     Dates: end: 20160330
  2. METFORMIN HYDROCHLORIDE. [Suspect]
     Active Substance: METFORMIN HYDROCHLORIDE
     Indication: PRODUCT USED FOR UNKNOWN INDICATION
     Dosage: 500 MG, QD
     Route: 065
     Dates: start: 20151229, end: 20160120
  3. METFORMIN HYDROCHLORIDE. [Suspect]
     Active Substance: METFORMIN HYDROCHLORIDE
     Dosage: 500 MG, BID
     Route: 065
     Dates: start: 20160121, end: 20160314
  4. PROCORALAN [Suspect]
     Active Substance: IVABRADINE
     Dosage: 2.5 MG, QD
     Route: 065
     Dates: start: 2010
  5. PROCORALAN [Suspect]
     Active Substance: IVABRADINE
     Indication: PRODUCT USED FOR UNKNOWN INDICATION
     Dosage: 5 MG, BID
     Route: 065
     Dates: start: 2008, end: 2010
  6. IMDUR [Concomitant]
     Active Substance: ISOSORBIDE MONONITRATE
     Indication: PRODUCT USED FOR UNKNOWN INDICATION
     Dosage: UNK
     Dates: start: 20151005
  7. NICORANDIL [Concomitant]
     Active Substance: NICORANDIL
     Indication: PRODUCT USED FOR UNKNOWN INDICATION
     Dosage: 5 MG, BID
     Dates: start: 201002
  8. DIAMICRON [Suspect]
     Active Substance: GLICLAZIDE
     Indication: DIABETES MELLITUS
     Dosage: 30 MG, QD
     Route: 065
     Dates: start: 20151029

REACTIONS (6)
  - Asthenia [Not Recovered/Not Resolved]
  - Mental impairment [Not Recovered/Not Resolved]
  - Underdose [Recovered/Resolved]
  - Depressed mood [Not Recovered/Not Resolved]
  - Disturbance in attention [Not Recovered/Not Resolved]
  - Wrong technique in product usage process [Recovered/Resolved]

NARRATIVE: CASE EVENT DATE: 2016
